FAERS Safety Report 6698475-0 (Version None)
Quarter: 2010Q2

REPORT INFORMATION
  Report Type: 
  Country: None (occurrence: None)
  Receive Date: 20100427
  Receipt Date: 20100416
  Transmission Date: 20101027
  Serious: Yes (Hospitalization, Other)
  Sender: FDA-Public Use
  Company Number: DE-AMGEN-UK350688

PATIENT
  Sex: Female
  Weight: 60 kg

DRUGS (5)
  1. NPLATE [Suspect]
     Indication: THROMBOCYTOPENIA
     Route: 058
     Dates: start: 20090429
  2. RITUXIMAB [Concomitant]
     Dates: start: 20090611, end: 20090625
  3. PANTOZOL [Concomitant]
     Route: 065
  4. PREDNISONE [Concomitant]
     Route: 065
  5. CYCLOKAPRON [Concomitant]

REACTIONS (4)
  - DRUG INEFFECTIVE [None]
  - HAEMORRHAGE INTRACRANIAL [None]
  - MENINGITIS [None]
  - SUBDURAL HAEMATOMA [None]
